FAERS Safety Report 23229691 (Version 1)
Quarter: 2023Q4

REPORT INFORMATION
  Report Type: Spontaneous
  Country: US (occurrence: None)
  Receive Date: 20231127
  Receipt Date: 20231127
  Transmission Date: 20240109
  Serious: No
  Sender: FDA-Public Use
  Company Number: US-ROCHE-3371147

PATIENT
  Sex: Male

DRUGS (12)
  1. PULMOZYME [Suspect]
     Active Substance: DORNASE ALFA
     Indication: Cystic fibrosis lung
     Dosage: 1MG/ML
     Route: 055
     Dates: start: 20230208
  2. ACETAMINOPHEN [Concomitant]
     Active Substance: ACETAMINOPHEN
  3. ALBUTEROL [Concomitant]
     Active Substance: ALBUTEROL
     Dosage: 108
  4. ALLOPURINOL [Concomitant]
     Active Substance: ALLOPURINOL
  5. CITALOPRAM HYDROBROMIDE [Concomitant]
     Active Substance: CITALOPRAM HYDROBROMIDE
  6. FINASTERIDE [Concomitant]
     Active Substance: FINASTERIDE
  7. FLUTICASONE [Concomitant]
     Active Substance: FLUTICASONE
     Dosage: 50MCG/AC
  8. LEVOCETIRIZINE [Concomitant]
     Active Substance: LEVOCETIRIZINE
  9. LEVOTHYROXINE [Concomitant]
     Active Substance: LEVOTHYROXINE
     Dosage: 200MCG, 25MCG
  10. LISINOPRIL [Concomitant]
     Active Substance: LISINOPRIL
  11. OMEPRAZOLE [Concomitant]
     Active Substance: OMEPRAZOLE
  12. TAMSULOSIN HYDROCHLORIDE [Concomitant]
     Active Substance: TAMSULOSIN HYDROCHLORIDE

REACTIONS (2)
  - Feelings of worthlessness [Not Recovered/Not Resolved]
  - Decreased interest [Not Recovered/Not Resolved]
